FAERS Safety Report 22301344 (Version 2)
Quarter: 2023Q2

REPORT INFORMATION
  Report Type: Spontaneous
  Country: US (occurrence: US)
  Receive Date: 20230509
  Receipt Date: 20230511
  Transmission Date: 20230722
  Serious: Yes (Other)
  Sender: FDA-Public Use
  Company Number: US-SA-SAC20230508001432

PATIENT
  Sex: Female
  Weight: 178 kg

DRUGS (1)
  1. DUPIXENT [Suspect]
     Active Substance: DUPILUMAB
     Indication: Dermatitis atopic
     Dosage: 300 MG, QOW
     Route: 058
     Dates: start: 2021

REACTIONS (5)
  - Gastric bypass [Unknown]
  - Weight decreased [Unknown]
  - Skin texture abnormal [Unknown]
  - Stress [Unknown]
  - Dermatitis atopic [Unknown]
